FAERS Safety Report 19421051 (Version 1)
Quarter: 2021Q2

REPORT INFORMATION
  Report Type: Other
  Country: IT (occurrence: IT)
  Receive Date: 20210616
  Receipt Date: 20210616
  Transmission Date: 20210717
  Serious: Yes (Other)
  Sender: FDA-Public Use
  Company Number: IT-CELLTRION INC.-2021IT007871

PATIENT

DRUGS (16)
  1. VINORELBINE [Suspect]
     Active Substance: VINORELBINE TARTRATE
     Indication: BREAST CANCER
     Dosage: 48 MG
     Route: 042
     Dates: start: 20190503, end: 20190730
  2. PALBOCICLIB [Suspect]
     Active Substance: PALBOCICLIB
     Indication: BREAST CANCER
     Dosage: 125 MG
     Route: 048
     Dates: start: 20191104
  3. LAPATINIB [Suspect]
     Active Substance: LAPATINIB
     Indication: BREAST CANCER
     Dosage: 1250 MG, IN 1 DAY
     Route: 048
     Dates: start: 20181016, end: 20190410
  4. ZOLEDRONIC ACID [Concomitant]
     Active Substance: ZOLEDRONIC ACID
     Dosage: UNK, ONGOING = CHECKED
     Dates: start: 20191106
  5. FULVESTRANT. [Suspect]
     Active Substance: FULVESTRANT
     Indication: BREAST CANCER
     Dosage: 250 MG
     Route: 042
     Dates: start: 20191104, end: 20201221
  6. DOCETAXEL. [Suspect]
     Active Substance: DOCETAXEL
     Indication: BREAST CANCER
     Dosage: 137.25 MG EVERY 3 WEEKS
     Route: 042
     Dates: start: 20170130, end: 20170719
  7. EUTIROX [Concomitant]
     Active Substance: LEVOTHYROXINE SODIUM
     Dosage: UNK
     Dates: start: 20161219
  8. TRASTUZUMAB EMTANSINE [Suspect]
     Active Substance: ADO-TRASTUZUMAB EMTANSINE
     Indication: BREAST CANCER
     Dosage: 3.6 UG/KG EVERY 3 WEEKS
     Route: 042
     Dates: start: 20180613, end: 20181001
  9. CAPECITABINE. [Suspect]
     Active Substance: CAPECITABINE
     Indication: BREAST CANCER
     Dosage: 3000 MG
     Route: 048
     Dates: start: 20181016, end: 20190410
  10. LUVION (ITALY) [Concomitant]
     Dosage: UNK, ONGOING = CHECKED
     Dates: start: 20200622
  11. LASIX [Concomitant]
     Active Substance: FUROSEMIDE
     Dosage: UNK, ONGOING = CHECKED
     Dates: start: 20200527
  12. LOSARTAN. [Concomitant]
     Active Substance: LOSARTAN
     Dosage: UNK, ONGOING = CHECKED
  13. ERIBULIN MESYLATE [Suspect]
     Active Substance: ERIBULIN MESYLATE
     Indication: BREAST CANCER
     Dosage: 2.36 MG
     Route: 042
     Dates: start: 20190903, end: 20191023
  14. PERTUZUMAB. [Suspect]
     Active Substance: PERTUZUMAB
     Indication: BREAST CANCER
     Dosage: 840 MG EVERY 3 WEEKS; ON 20/FEB/2017: MOST RECENT DOSE OF PERTUZUMAB PRIOR TO THE EVENT
     Route: 042
     Dates: start: 20170130, end: 20170130
  15. CITALOPRAM [Concomitant]
     Active Substance: CITALOPRAM HYDROBROMIDE
     Dosage: UNK, ONGOING = CHECKED
  16. TRASTUZUMAB (UNKNOWN) [Suspect]
     Active Substance: TRASTUZUMAB
     Indication: BREAST CANCER
     Dosage: 560 MG EVERY 3 WEEKS; ON 03/MAY/2019: MOST RECENT DOSE OF TRASTUZUMAB PRIOR TO THE EVENT
     Route: 042
     Dates: start: 20170130, end: 20170130

REACTIONS (2)
  - Urinary retention [Recovered/Resolved]
  - Oedema [Recovered/Resolved]

NARRATIVE: CASE EVENT DATE: 20200527
